FAERS Safety Report 9551088 (Version 2)
Quarter: 2014Q1

REPORT INFORMATION
  Report Type: Spontaneous
  Country: GB (occurrence: GB)
  Receive Date: 20130925
  Receipt Date: 20140123
  Transmission Date: 20141002
  Serious: Yes (Other)
  Sender: FDA-Public Use
  Company Number: GB-MICRO LABS LIMITED-BB2013-GB-00908

PATIENT
  Age: 55 Year
  Sex: Female
  Weight: 73.93 kg

DRUGS (3)
  1. SIMVASTATIN [Suspect]
     Indication: DIABETES MELLITUS
     Route: 048
     Dates: start: 20091016, end: 20120720
  2. METFORMIN [Concomitant]
     Indication: PRODUCT USED FOR UNKNOWN INDICATION
     Route: 065
  3. RAMIPRIL [Concomitant]
     Indication: PRODUCT USED FOR UNKNOWN INDICATION
     Route: 065

REACTIONS (7)
  - Fear of death [Recovered/Resolved]
  - Anxiety [Recovered/Resolved]
  - Fear of disease [Recovered/Resolved]
  - Disturbance in attention [Recovered/Resolved]
  - Hypochondriasis [Recovered/Resolved]
  - Obsessive thoughts [Recovered/Resolved]
  - Middle insomnia [Recovered/Resolved]
